FAERS Safety Report 20939657 (Version 2)
Quarter: 2022Q2

REPORT INFORMATION
  Report Type: Report from Study
  Country: AU (occurrence: None)
  Receive Date: 20220609
  Receipt Date: 20220630
  Transmission Date: 20220721
  Serious: Yes (Other)
  Sender: FDA-Public Use
  Company Number: AU-ROCHE-3108932

PATIENT
  Age: 76 Year
  Sex: Male
  Weight: 82 kg

DRUGS (4)
  1. FARICIMAB [Suspect]
     Active Substance: FARICIMAB
     Indication: Retinal vein occlusion
     Dosage: START DATE OF MOST RECENT DOSE OF STUDY DRUG PRIOR TO AE 03-MAY-2022
     Route: 050
     Dates: start: 20211109
  2. FARICIMAB [Suspect]
     Active Substance: FARICIMAB
     Indication: Retinal vein occlusion
     Dosage: START DATE OF MOST RECENT DOSE OF STUDY DRUG PRIOR TO AE 03-MAY-2022
     Route: 050
     Dates: start: 20211109
  3. VISINE TEARS DRY EYE RELIEF [Concomitant]
     Active Substance: GLYCERIN\HYPROMELLOSES\POLYETHYLENE GLYCOL 400
     Route: 047
     Dates: start: 2020
  4. VISINE TEARS DRY EYE RELIEF [Concomitant]
     Active Substance: GLYCERIN\HYPROMELLOSES\POLYETHYLENE GLYCOL 400
     Route: 047
     Dates: start: 2020

REACTIONS (1)
  - Cystoid macular oedema [Not Recovered/Not Resolved]

NARRATIVE: CASE EVENT DATE: 20220531
